FAERS Safety Report 6924445-0 (Version None)
Quarter: 2010Q3

REPORT INFORMATION
  Report Type: 
  Country: None (occurrence: None)
  Receive Date: 20100811
  Receipt Date: 20100719
  Transmission Date: 20110219
  Serious: Yes (Other)
  Sender: FDA-Public Use
  Company Number: 0212444

PATIENT
  Age: 30 Year
  Sex: Female

DRUGS (3)
  1. TACHOSIL [Suspect]
     Indication: CAESAREAN SECTION
     Dosage: 1 DOSAGE FORMS
  2. IRON (IRON) [Concomitant]
  3. CALCIUM (CALCIUM CARBONATE) [Concomitant]

REACTIONS (1)
  - UTERINE MASS [None]
